FAERS Safety Report 4402082-X (Version None)
Quarter: 2004Q3

REPORT INFORMATION
  Report Type: 
  Country: None (occurrence: None)
  Receive Date: 20040714
  Receipt Date: 20040630
  Transmission Date: 20050211
  Serious: Yes (Other)
  Sender: FDA-Public Use
  Company Number: 2004222270US

PATIENT
  Age: 13 Year
  Sex: Female

DRUGS (1)
  1. R-GENE 10 [Suspect]
     Dates: start: 20040625, end: 20040625

REACTIONS (4)
  - GLOMERULONEPHRITIS PROLIFERATIVE [None]
  - HAEMATURIA [None]
  - POLLAKIURIA [None]
  - URINARY INCONTINENCE [None]
